FAERS Safety Report 23978020 (Version 1)
Quarter: 2024Q2

REPORT INFORMATION
  Report Type: Report from Study
  Country: BR (occurrence: BR)
  Receive Date: 20240614
  Receipt Date: 20240614
  Transmission Date: 20240716
  Serious: Yes (Other)
  Sender: FDA-Public Use
  Company Number: BR-BAYER-2024A037034

PATIENT
  Age: 68 Year
  Sex: Male

DRUGS (7)
  1. STIVARGA [Suspect]
     Active Substance: REGORAFENIB\REGORAFENIB MONOHYDRATE
     Indication: Hepatocellular carcinoma
     Dosage: 160 MG, QD
     Dates: start: 202402
  2. STIVARGA [Suspect]
     Active Substance: REGORAFENIB\REGORAFENIB MONOHYDRATE
     Indication: Hepatocellular carcinoma
     Dosage: 120 MG, QD
     Dates: start: 20240313
  3. BISOPROLOL FUMARATE [Concomitant]
     Active Substance: BISOPROLOL FUMARATE
     Indication: Arrhythmia
     Dosage: 5 MG, QD
     Dates: start: 2014
  4. ESOMEPRAZOLE MAGNESIUM [Concomitant]
     Active Substance: ESOMEPRAZOLE MAGNESIUM
     Indication: Asthma
     Dosage: ASPIRATES 1 CAPSULE/12H
     Dates: start: 1999
  5. GLICLAZIDE [Concomitant]
     Active Substance: GLICLAZIDE
     Indication: Diabetes mellitus
     Dosage: 1 TABLET/DAY FASTING BEFORE BREAKFAST ABOUT 10-15 YEARS AGO
  6. METFORMIN [Concomitant]
     Active Substance: METFORMIN HYDROCHLORIDE
     Indication: Diabetes mellitus
     Dosage: 3 TABLETS/DAY (1 AFTER EACH MEAL) ABOUT 10-15 YEARS AGO
  7. ONDANSETRON HYDROCHLORIDE [Concomitant]
     Active Substance: ONDANSETRON HYDROCHLORIDE
     Indication: Dizziness
     Dosage: 1 TABLET/DAY IF NAUSEOUS, SOMETIMES 1 CP/12H
     Dates: start: 2022

REACTIONS (21)
  - Gait disturbance [Recovering/Resolving]
  - Skin hypertrophy [Recovering/Resolving]
  - Pain in extremity [Recovering/Resolving]
  - Peripheral swelling [Recovering/Resolving]
  - Constipation [Recovering/Resolving]
  - Headache [Not Recovered/Not Resolved]
  - Decreased appetite [Not Recovered/Not Resolved]
  - Renal disorder [Not Recovered/Not Resolved]
  - Blister [Recovered/Resolved]
  - Micturition frequency decreased [Not Recovered/Not Resolved]
  - Skin exfoliation [Not Recovered/Not Resolved]
  - Blister [None]
  - Adverse drug reaction [None]
  - Depression [Not Recovered/Not Resolved]
  - Discouragement [Not Recovered/Not Resolved]
  - Malaise [None]
  - Depressed mood [None]
  - Fear of surgery [None]
  - Nausea [Recovering/Resolving]
  - Fatigue [None]
  - Dry skin [Unknown]

NARRATIVE: CASE EVENT DATE: 20240201
